FAERS Safety Report 6608589-9 (Version None)
Quarter: 2010Q1

REPORT INFORMATION
  Report Type: 
  Country: None (occurrence: None)
  Receive Date: 20100301
  Receipt Date: 20100219
  Transmission Date: 20100710
  Serious: Yes (Other)
  Sender: FDA-Public Use
  Company Number: GXKR2010US02090

PATIENT
  Age: 11 Year
  Sex: Male

DRUGS (7)
  1. AZATHIOPRINE SODIUM [Suspect]
     Route: 065
  2. PREDNISONE TAB [Suspect]
     Route: 065
  3. CYCLOSPORINE [Suspect]
     Route: 065
  4. THALIDOMIDE [Suspect]
     Route: 065
  5. DACLIZUMAB [Suspect]
     Route: 065
  6. SIROLIMUS [Suspect]
     Route: 065
  7. VORICONAZOLE [Suspect]
     Dosage: 50 MG/DAY
     Route: 065

REACTIONS (5)
  - ACTINIC KERATOSIS [None]
  - ERYTHEMA [None]
  - LENTIGO [None]
  - PHOTOSENSITIVITY REACTION [None]
  - SQUAMOUS CELL CARCINOMA [None]
